FAERS Safety Report 7988859-2 (Version None)
Quarter: 2011Q4

REPORT INFORMATION
  Report Type: 
  Country: None (occurrence: None)
  Receive Date: 20111219
  Receipt Date: 20111209
  Transmission Date: 20120403
  Serious: Yes (Other)
  Sender: FDA-Public Use
  Company Number: US-JNJFOC-20111204640

PATIENT
  Sex: Female

DRUGS (18)
  1. DULCOLAX [Concomitant]
  2. OXYCODONE HCL [Concomitant]
  3. SINGULAIR [Concomitant]
  4. FLONASE [Concomitant]
  5. ATROVENT [Concomitant]
  6. ALBUTEROL [Concomitant]
  7. OMEPRAZOLE [Concomitant]
  8. XARELTO [Suspect]
     Indication: KNEE ARTHROPLASTY
     Route: 048
     Dates: start: 20111206, end: 20111207
  9. REGLAN [Concomitant]
  10. ACETAMINOPHEN [Concomitant]
  11. DILAUDID [Concomitant]
  12. NITROFURANTOIN [Concomitant]
  13. ZOCOR [Concomitant]
  14. BENADRYL [Concomitant]
  15. CLONAZEPAM [Concomitant]
  16. CELEBREX [Concomitant]
  17. ZOFRAN [Concomitant]
  18. AMBIEN [Concomitant]

REACTIONS (2)
  - PULMONARY EMBOLISM [None]
  - DEEP VEIN THROMBOSIS [None]
